FAERS Safety Report 24559787 (Version 4)
Quarter: 2024Q4

REPORT INFORMATION
  Report Type: Spontaneous
  Country: KR (occurrence: KR)
  Receive Date: 20241029
  Receipt Date: 20241123
  Transmission Date: 20250114
  Serious: Yes (Disabling, Other)
  Sender: ACCORD
  Company Number: KR-Accord-453152

PATIENT
  Age: 24 Year
  Sex: Female
  Weight: 54.3 kg

DRUGS (1)
  1. FLUOROURACIL [Suspect]
     Active Substance: FLUOROURACIL
     Indication: Conjunctival bleb
     Dosage: 2.5 MG/ML WAS DELIVERED VIA A 30-GAUGE NEEDLE
     Route: 057

REACTIONS (1)
  - Cataract [Recovered/Resolved]
